FAERS Safety Report 8361456-5 (Version None)
Quarter: 2012Q2

REPORT INFORMATION
  Report Type: 
  Country: None (occurrence: None)
  Receive Date: 20120514
  Receipt Date: 20120427
  Transmission Date: 20120825
  Serious: Yes (Hospitalization)
  Sender: FDA-Public Use
  Company Number: 2012US-56143

PATIENT
  Age: 59 Year
  Sex: Female

DRUGS (7)
  1. IREX (IREX) [Concomitant]
  2. METFORMIN HCL [Suspect]
     Dates: start: 20110312
  3. ASPIRIN [Concomitant]
  4. TELMISARTAN [Suspect]
     Indication: PRODUCT USED FOR UNKNOWN INDICATION
     Dates: end: 20120403
  5. GLIMEPIRIDE [Suspect]
     Indication: TYPE 2 DIABETES MELLITUS
  6. HYDROCHLOROTHIAZIDE [Suspect]
     Indication: PRODUCT USED FOR UNKNOWN INDICATION
     Dates: end: 20120403
  7. SAXAGLIPTIN (SAXAGLIPTIN) [Suspect]
     Indication: TYPE 2 DIABETES MELLITUS
     Dates: start: 20110312

REACTIONS (3)
  - UPPER RESPIRATORY TRACT INFECTION [None]
  - HYPERKALAEMIA [None]
  - BRONCHITIS [None]
